FAERS Safety Report 5647284-X (Version None)
Quarter: 2008Q1

REPORT INFORMATION
  Report Type: 
  Country: None (occurrence: None)
  Receive Date: 20080228
  Receipt Date: 20080212
  Transmission Date: 20080703
  Serious: Yes (Hospitalization)
  Sender: FDA-Public Use
  Company Number: 6040802

PATIENT
  Age: 87 Year
  Sex: Female

DRUGS (8)
  1. BISOPROLOL FUMARATE [Suspect]
     Indication: CARDIAC FAILURE
     Dosage: ORAL
     Route: 048
     Dates: start: 20070701
  2. LAMISIL [Suspect]
     Indication: DRUG USE FOR UNKNOWN INDICATION
     Dosage: ORAL
     Route: 048
  3. CORDARONE [Suspect]
     Indication: ATRIAL FIBRILLATION
     Dosage: ORAL
     Route: 048
     Dates: start: 20070301
  4. PLAVIX [Suspect]
     Indication: CARDIAC FAILURE
     Dosage: ORAL
     Route: 048
     Dates: start: 20070501
  5. LASIX [Concomitant]
  6. MYCOSTER          (CICLOPIROX OLAMINE) [Concomitant]
  7. KETOCONAZOLE [Concomitant]
  8. BLEU DE MILIAN            (METHYLROSANILINIUM CHLORIDE) [Concomitant]

REACTIONS (1)
  - TOXIC SKIN ERUPTION [None]
